FAERS Safety Report 5050769-0 (Version None)
Quarter: 2006Q3

REPORT INFORMATION
  Report Type: 
  Country: None (occurrence: None)
  Receive Date: 20060706
  Receipt Date: 20060626
  Transmission Date: 20061208
  Serious: Yes (Other)
  Sender: FDA-Public Use
  Company Number: A126777

PATIENT
  Age: 45 Year
  Sex: Male

DRUGS (14)
  1. SERTRALINE [Suspect]
     Indication: DEPRESSION
     Dosage: 200 MG (200 MG, 1 IN 1 D), ORAL
     Route: 048
  2. LINEZOLID [Suspect]
     Indication: PATHOGEN RESISTANCE
     Dosage: 1200 MG (600 MG, 2 IN 1 D), INTRAVENOUS
     Route: 042
  3. FLAGYL [Suspect]
     Indication: INFECTION
     Dosage: 2000 MG (500 MG, 4 IN 1 D), ORAL
     Route: 048
  4. RISPERIDONE [Suspect]
     Indication: PSYCHOTIC DISORDER
     Dosage: 2 MG (1MG,2 IN 1 D)
  5. BUPROPION HCL [Suspect]
     Indication: DEPRESSION
     Dosage: 150 MG (75 MG, 2 IN 1 D)
  6. LITHIUM CARBONATE [Concomitant]
  7. TRAZODONE HCL [Concomitant]
  8. BACLOFEN [Concomitant]
  9. DOCUSATE SODIUM [Concomitant]
  10. BISCODYL (BISACODYL) [Concomitant]
  11. MEGESTROL [Concomitant]
  12. LANSOPRAZOLE [Concomitant]
  13. PROMETHAZINE [Concomitant]
  14. CYPROHEPTADINE HCL [Concomitant]

REACTIONS (6)
  - DECUBITUS ULCER [None]
  - DEPRESSION [None]
  - DRUG INTERACTION [None]
  - ENTEROCOCCAL INFECTION [None]
  - POSTOPERATIVE ABSCESS [None]
  - SEROTONIN SYNDROME [None]
